FAERS Safety Report 7334935 (Version 3)
Quarter: 2012Q4

REPORT INFORMATION
  Report Type: 
  Country: JP (occurrence: JP)
  Receive Date: 20100329
  Receipt Date: 20121008
  Transmission Date: 20130627
  Serious: Yes (Hospitalization, Other)
  Sender: FDA-Public Use
  Company Number: JP-PFIZER INC-2010034028

PATIENT
  Age: 56 Year
  Sex: Female
  Weight: 51.72 kg

DRUGS (7)
  1. MYCOBUTIN [Suspect]
     Indication: MYCOBACTERIUM AVIUM COMPLEX INFECTION
     Dosage: 150 mg, 1x/day
     Route: 048
     Dates: start: 20100213, end: 20100303
  2. KLARICID [Concomitant]
     Dosage: 200 mg, 2x/day
     Route: 048
  3. KANAMYCIN SULFATE [Concomitant]
     Indication: MYCOBACTERIAL INFECTION
     Dosage: 0.75 mg, 1x/day
     Route: 042
  4. GRACEVIT [Concomitant]
     Dosage: 25 mg, 2x/day
     Route: 048
  5. VITAMEDIN CAPSULE [Concomitant]
     Dosage: 1 DF, 1x/day
     Route: 048
  6. PANTOSIN [Concomitant]
     Dosage: 1 DF, 1x/day
     Route: 048
  7. TRANSAMIN [Concomitant]
     Dosage: 1 DF, 1x/day
     Route: 048

REACTIONS (1)
  - Platelet count decreased [Recovering/Resolving]
